FAERS Safety Report 16805711 (Version 1)
Quarter: 2019Q3

REPORT INFORMATION
  Report Type: Spontaneous
  Country: US (occurrence: US)
  Receive Date: 20190724
  Receipt Date: 20190724
  Transmission Date: 20191005
  Serious: No
  Sender: FDA-Public Use
  Company Number: None

PATIENT
  Age: 85 Year
  Sex: Female
  Weight: 56.7 kg

DRUGS (18)
  1. ATENOLOL. [Concomitant]
     Active Substance: ATENOLOL
  2. MAGNESIUM [Concomitant]
     Active Substance: MAGNESIUM
  3. B6 [Concomitant]
     Active Substance: PYRIDOXINE HYDROCHLORIDE
  4. HILLBERY [Concomitant]
  5. LOSARTAN. [Suspect]
     Active Substance: LOSARTAN
  6. LEVOTHYROXINE. [Concomitant]
     Active Substance: LEVOTHYROXINE
  7. INDAPAMIDE. [Concomitant]
     Active Substance: INDAPAMIDE
  8. AMLODIPINE [Concomitant]
     Active Substance: AMLODIPINE BESYLATE
  9. ASPIRIN 81MG [Concomitant]
     Active Substance: ASPIRIN
  10. ZANEX [Concomitant]
  11. ZOLPIDEM [Suspect]
     Active Substance: ZOLPIDEM TARTRATE
  12. COQ10 [Concomitant]
     Active Substance: UBIDECARENONE
  13. ZOLPIDEM [Concomitant]
     Active Substance: ZOLPIDEM TARTRATE
  14. CALCIUM [Concomitant]
     Active Substance: CALCIUM
  15. OLMESARTAN [Concomitant]
     Active Substance: OLMESARTAN
  16. CPAP [Concomitant]
     Active Substance: DEVICE
  17. CRESTOR [Concomitant]
     Active Substance: ROSUVASTATIN CALCIUM
  18. MULTI VITAMIN [Concomitant]
     Active Substance: VITAMINS

REACTIONS (3)
  - Product substitution issue [None]
  - Drug ineffective [None]
  - Poor quality sleep [None]

NARRATIVE: CASE EVENT DATE: 20190706
